FAERS Safety Report 4962793-4 (Version None)
Quarter: 2006Q2

REPORT INFORMATION
  Report Type: 
  Country: None (occurrence: None)
  Receive Date: 20060404
  Receipt Date: 20051115
  Transmission Date: 20061013
  Serious: Yes (Hospitalization, Disabling)
  Sender: FDA-Public Use
  Company Number: US-MERCK-0511USA02558

PATIENT
  Age: 50 Year
  Sex: Female
  Weight: 136 kg

DRUGS (8)
  1. VIOXX [Suspect]
     Indication: ARTHRITIS
     Route: 048
     Dates: start: 20020101, end: 20030901
  2. PLAVIX [Concomitant]
     Route: 065
     Dates: start: 20020101
  3. FOLIC ACID [Concomitant]
     Route: 065
     Dates: start: 20020101
  4. ZESTORETIC [Concomitant]
     Route: 048
  5. FLOVENT [Concomitant]
     Route: 065
  6. PROVENTIL [Concomitant]
     Route: 065
  7. ASPIRIN [Concomitant]
     Route: 065
  8. ZOLOFT [Concomitant]
     Route: 065

REACTIONS (23)
  - ANAEMIA [None]
  - ANGINA PECTORIS [None]
  - ANGINA UNSTABLE [None]
  - APHASIA [None]
  - CEREBROVASCULAR ACCIDENT [None]
  - CONVULSION [None]
  - DIABETES MELLITUS NON-INSULIN-DEPENDENT [None]
  - ELECTROPHORESIS ABNORMAL [None]
  - ESCHERICHIA INFECTION [None]
  - GASTROOESOPHAGEAL REFLUX DISEASE [None]
  - HEMIPLEGIA [None]
  - HYPERKALAEMIA [None]
  - HYPERTENSIVE CRISIS [None]
  - INFARCTION [None]
  - PYREXIA [None]
  - SEPSIS [None]
  - SLEEP DISORDER [None]
  - STAPHYLOCOCCAL INFECTION [None]
  - STAPHYLOCOCCAL SEPSIS [None]
  - STUPOR [None]
  - URINARY TRACT INFECTION [None]
  - VENTRICULAR HYPERTROPHY [None]
  - WRIST FRACTURE [None]
